FAERS Safety Report 14698435 (Version 4)
Quarter: 2018Q4

REPORT INFORMATION
  Report Type: Spontaneous
  Country: DE (occurrence: DE)
  Receive Date: 20180330
  Receipt Date: 20181102
  Transmission Date: 20190204
  Serious: Yes (Death, Other)
  Sender: FDA-Public Use
  Company Number: DE-AUROBINDO-AUR-APL-2018-016966

PATIENT

DRUGS (24)
  1. HYDROXYZINE HYDROCHLORIDE. [Interacting]
     Active Substance: HYDROXYZINE HYDROCHLORIDE
     Indication: PRODUCT USED FOR UNKNOWN INDICATION
     Dosage: UNK
     Route: 065
  2. MIDAZOLAM [Suspect]
     Active Substance: MIDAZOLAM HYDROCHLORIDE
     Dosage: UNK (UNKNOWN DOSE)
     Route: 065
  3. PROCAINE [Interacting]
     Active Substance: PROCAINE
     Indication: PRODUCT USED FOR UNKNOWN INDICATION
     Dosage: UNK
     Route: 065
  4. PHENACETIN [Interacting]
     Active Substance: PHENACETIN
     Dosage: UNK (UNKNOWN DOSE)
     Route: 065
  5. CODEINE [Suspect]
     Active Substance: CODEINE
     Indication: PRODUCT USED FOR UNKNOWN INDICATION
     Dosage: UNK
     Route: 065
  6. LIDOCAINE. [Suspect]
     Active Substance: LIDOCAINE
     Indication: PRODUCT USED FOR UNKNOWN INDICATION
     Dosage: UNK
     Route: 065
  7. PROCAINE [Interacting]
     Active Substance: PROCAINE
     Dosage: UNK (UNKNOWN DOSE)
     Route: 065
  8. COCAINE [Interacting]
     Active Substance: COCAINE
     Dosage: UNK UNK, UNK (UNKNOWN DOSE)
     Route: 065
  9. MIDAZOLAM [Suspect]
     Active Substance: MIDAZOLAM HYDROCHLORIDE
     Indication: PRODUCT USED FOR UNKNOWN INDICATION
     Dosage: UNK
     Route: 065
  10. MORPHINE [Suspect]
     Active Substance: MORPHINE
     Dosage: UNK (UNKNOWN DOSE)
     Route: 065
  11. DILTIAZEM. [Interacting]
     Active Substance: DILTIAZEM
     Indication: PRODUCT USED FOR UNKNOWN INDICATION
     Dosage: UNK
     Route: 065
  12. COCAINE [Interacting]
     Active Substance: COCAINE
     Indication: PRODUCT USED FOR UNKNOWN INDICATION
     Dosage: UNK
     Route: 065
  13. LEVAMISOLE [Interacting]
     Active Substance: LEVAMISOLE
     Indication: PRODUCT USED FOR UNKNOWN INDICATION
     Dosage: UNKNOWN DOSE
     Route: 065
  14. CETIRIZINE [Suspect]
     Active Substance: CETIRIZINE HYDROCHLORIDE
     Dosage: UNK (UNKNOWN DOSE)
     Route: 065
  15. DILTIAZEM. [Interacting]
     Active Substance: DILTIAZEM
     Dosage: UNK (UNKNOWN DOSE)
     Route: 065
  16. MORPHINE [Suspect]
     Active Substance: MORPHINE
     Indication: PRODUCT USED FOR UNKNOWN INDICATION
     Dosage: UNK
     Route: 065
  17. LEVAMISOLE [Interacting]
     Active Substance: LEVAMISOLE
     Dosage: UNK (UNKNOWN DOSE)
     Route: 065
  18. CODEINE [Suspect]
     Active Substance: CODEINE
     Dosage: UNK (UNKNOWN DOSE)
     Route: 065
  19. LIDOCAINE. [Interacting]
     Active Substance: LIDOCAINE
     Dosage: UNK (UNKNOWN DOSE)
     Route: 065
  20. CETIRIZINE [Suspect]
     Active Substance: CETIRIZINE HYDROCHLORIDE
     Indication: PRODUCT USED FOR UNKNOWN INDICATION
     Dosage: UNK
     Route: 065
  21. PHENACETIN [Interacting]
     Active Substance: PHENACETIN
     Indication: PRODUCT USED FOR UNKNOWN INDICATION
     Dosage: UNK
     Route: 065
  22. HYDROXYZINE HYDROCHLORIDE. [Interacting]
     Active Substance: HYDROXYZINE HYDROCHLORIDE
     Dosage: UNK (UNKNOWN DOSE)
     Route: 065
  23. NOSCAPINE [Suspect]
     Active Substance: NOSCAPINE
     Indication: PRODUCT USED FOR UNKNOWN INDICATION
     Dosage: UNK
     Route: 065
  24. NOSCAPINE [Suspect]
     Active Substance: NOSCAPINE
     Dosage: UNK (UNKNOWN DOSE)
     Route: 065

REACTIONS (4)
  - Toxicity to various agents [Fatal]
  - Intentional product misuse [Fatal]
  - Drug interaction [Fatal]
  - Poisoning [Fatal]
